FAERS Safety Report 24799724 (Version 1)
Quarter: 2024Q4

REPORT INFORMATION
  Report Type: Spontaneous
  Country: US (occurrence: None)
  Receive Date: 20241231
  Receipt Date: 20241231
  Transmission Date: 20250115
  Serious: No
  Sender: Public
  Company Number: None

PATIENT
  Age: 64 Year
  Sex: Female
  Weight: 99 kg

DRUGS (1)
  1. PYRIDOXINE\SEMAGLUTIDE [Suspect]
     Active Substance: PYRIDOXINE\SEMAGLUTIDE
     Indication: Weight decreased
     Dosage: 4 INJECTIONS WEEKLY SUBCUTANEOUS
     Route: 058
     Dates: start: 20241112

REACTIONS (4)
  - Nausea [None]
  - Hunger [None]
  - Drug ineffective [None]
  - Product storage error [None]

NARRATIVE: CASE EVENT DATE: 20241230
